FAERS Safety Report 11895958 (Version 4)
Quarter: 2017Q3

REPORT INFORMATION
  Report Type: Spontaneous
  Country: US (occurrence: US)
  Receive Date: 20160107
  Receipt Date: 20170814
  Transmission Date: 20171127
  Serious: Yes (Death, Other)
  Sender: FDA-Public Use
  Company Number: PHHY2015US172165

PATIENT
  Age: 50 Year
  Sex: Male
  Weight: 74.4 kg

DRUGS (13)
  1. CLOZAPINE. [Suspect]
     Active Substance: CLOZAPINE
     Indication: SCHIZOAFFECTIVE DISORDER
     Dosage: 25 MG, DAY1, RECEIVED 1625 MG OVER 14 DAYS,
     Route: 065
  2. DIVALPROEX SODIUM. [Concomitant]
     Active Substance: DIVALPROEX SODIUM
     Indication: SCHIZOAFFECTIVE DISORDER
     Dosage: 1000 MG, PER DAY
     Route: 065
  3. LISINOPRIL. [Concomitant]
     Active Substance: LISINOPRIL
     Indication: HYPERTENSION
     Dosage: 10 MG, PER DAY
     Route: 065
  4. QUETIAPINE. [Concomitant]
     Active Substance: QUETIAPINE
     Indication: SCHIZOAFFECTIVE DISORDER
     Route: 065
  5. CLOZAPINE. [Interacting]
     Active Substance: CLOZAPINE
     Dosage: 50 MG, DAY2,3 AND 4
     Route: 065
  6. VALPROIC ACID. [Interacting]
     Active Substance: VALPROIC ACID
     Indication: SCHIZOAFFECTIVE DISORDER
     Route: 065
  7. CLOZAPINE. [Interacting]
     Active Substance: CLOZAPINE
     Dosage: 150 MG, DAY 8,9 AND 10
     Route: 065
  8. CLOZAPINE. [Interacting]
     Active Substance: CLOZAPINE
     Dosage: 350 MG, DAY 12, 13 AND 14
     Route: 065
  9. HYDROCHLOROTHIAZIDE. [Concomitant]
     Active Substance: HYDROCHLOROTHIAZIDE
     Indication: HYPERTENSION
     Dosage: 25 MG/DAY
     Route: 065
  10. BENZTROPINE [Concomitant]
     Active Substance: BENZTROPINE
     Indication: PRODUCT USED FOR UNKNOWN INDICATION
     Dosage: 4 MG/DAY
     Route: 065
  11. CLOZAPINE. [Interacting]
     Active Substance: CLOZAPINE
     Dosage: RECEIVED 1625 MG OVER 14 DAYS,
     Route: 065
  12. LAMOTRIGINE. [Concomitant]
     Active Substance: LAMOTRIGINE
     Indication: RASH
     Route: 065
  13. CLOZAPINE. [Interacting]
     Active Substance: CLOZAPINE
     Dosage: 100 MG, DAY 5,6 AND 7
     Route: 065

REACTIONS (3)
  - Drug interaction [Unknown]
  - Myocarditis [Fatal]
  - Drug effect incomplete [Unknown]

NARRATIVE: CASE EVENT DATE: 200501
